FAERS Safety Report 4760565-7 (Version None)
Quarter: 2005Q3

REPORT INFORMATION
  Report Type: 
  Country: None (occurrence: None)
  Receive Date: 20050902
  Receipt Date: 20050526
  Transmission Date: 20060218
  Serious: Yes (Hospitalization)
  Sender: FDA-Public Use
  Company Number: US-MERCK-0505USA03250

PATIENT
  Age: 55 Year
  Sex: Male
  Weight: 75 kg

DRUGS (13)
  1. VIOXX [Suspect]
     Indication: OSTEOARTHRITIS
     Route: 048
     Dates: start: 20000101, end: 20020401
  2. VIOXX [Suspect]
     Route: 048
     Dates: start: 20000101, end: 20000101
  3. ASPIRIN [Concomitant]
     Indication: PROPHYLAXIS
     Route: 065
  4. ASPIRIN [Concomitant]
     Route: 065
     Dates: start: 20020401
  5. CLARITIN [Concomitant]
     Route: 065
  6. NASONEX [Concomitant]
     Route: 065
  7. LIPITOR [Concomitant]
     Indication: HYPERTENSION
     Route: 065
     Dates: start: 19940101
  8. LIPITOR [Concomitant]
     Route: 065
     Dates: start: 19940101
  9. ALTACE [Concomitant]
     Route: 065
  10. ADVIL [Concomitant]
     Indication: OSTEOARTHRITIS
     Route: 065
     Dates: start: 19980101
  11. ADVIL [Concomitant]
     Indication: BACK PAIN
     Route: 065
     Dates: start: 19980101
  12. IBUPROFEN [Concomitant]
     Route: 065
     Dates: start: 19980101, end: 20000501
  13. MOTRIN [Concomitant]
     Route: 065
     Dates: start: 19980101

REACTIONS (4)
  - ATHEROSCLEROSIS [None]
  - CORONARY ARTERY OCCLUSION [None]
  - GASTROINTESTINAL DISORDER [None]
  - HYPERTENSION [None]
